FAERS Safety Report 9571397 (Version 2)
Quarter: 2013Q4

REPORT INFORMATION
  Report Type: Spontaneous
  Country: US (occurrence: US)
  Receive Date: 20131001
  Receipt Date: 20131001
  Transmission Date: 20140711
  Serious: Yes (Other)
  Sender: FDA-Public Use
  Company Number: US-JNJFOC-20130807297

PATIENT
  Age: 58 Year
  Sex: Male
  Weight: 80.74 kg

DRUGS (14)
  1. INVOKANA [Suspect]
     Indication: DIABETES MELLITUS
     Route: 048
     Dates: start: 20130620, end: 20130624
  2. NOVOLOG [Suspect]
     Indication: PRODUCT USED FOR UNKNOWN INDICATION
  3. NOVOLOG [Suspect]
     Indication: PRODUCT USED FOR UNKNOWN INDICATION
  4. LANTUS [Suspect]
     Indication: PRODUCT USED FOR UNKNOWN INDICATION
  5. AMLODIPINE [Concomitant]
  6. TRAZODONE [Concomitant]
  7. METOPROLOL [Concomitant]
  8. ABILIFY [Concomitant]
  9. OMEPRAZOLE [Concomitant]
  10. BUPROPION [Concomitant]
  11. ALLOPURINOL [Concomitant]
  12. CYMBALTA [Concomitant]
  13. PLAVIX [Concomitant]
  14. LIPITOR [Concomitant]

REACTIONS (3)
  - Hypoglycaemia [Recovered/Resolved]
  - Mental status changes [Recovered/Resolved]
  - Hyperhidrosis [Recovered/Resolved]
